FAERS Safety Report 9341078 (Version 1)
Quarter: 2013Q2

REPORT INFORMATION
  Report Type: Report from Study
  Country: US (occurrence: US)
  Receive Date: 20130610
  Receipt Date: 20130610
  Transmission Date: 20140414
  Serious: Yes (Hospitalization, Other)
  Sender: FDA-Public Use
  Company Number: US-RB-026816-09

PATIENT
  Age: 42 Year
  Sex: Male

DRUGS (1)
  1. SUBOXONE [Suspect]
     Indication: DRUG DEPENDENCE
     Dosage: DOSING DETAILS ARE UNKNOWN
     Route: 065
     Dates: end: 201211

REACTIONS (3)
  - Myocardial ischaemia [Recovered/Resolved]
  - Somnolence [Recovered/Resolved]
  - Influenza like illness [Recovered/Resolved]
